FAERS Safety Report 4887810-1 (Version None)
Quarter: 2006Q1

REPORT INFORMATION
  Report Type: 
  Country: None (occurrence: None)
  Receive Date: 20060123
  Receipt Date: 20050125
  Transmission Date: 20060701
  Serious: Yes (Hospitalization)
  Sender: FDA-Public Use
  Company Number: US-MERCK-0501USA04122

PATIENT
  Age: 53 Year
  Sex: Female
  Weight: 107 kg

DRUGS (1)
  1. VIOXX [Suspect]
     Indication: MUSCULOSKELETAL PAIN
     Route: 048
     Dates: start: 20001208

REACTIONS (18)
  - ASTHMA [None]
  - BRONCHITIS [None]
  - BURSITIS [None]
  - CEREBRAL INFARCTION [None]
  - CORONARY ARTERY DISEASE [None]
  - DIVERTICULUM [None]
  - DYSPEPSIA [None]
  - EPIGASTRIC DISCOMFORT [None]
  - EYE DISORDER [None]
  - GASTROOESOPHAGEAL REFLUX DISEASE [None]
  - HYPERSENSITIVITY [None]
  - ILIAC ARTERY STENOSIS [None]
  - MIGRAINE [None]
  - NASOPHARYNGITIS [None]
  - OVARIAN CYST [None]
  - POSTMENOPAUSAL HAEMORRHAGE [None]
  - SHOULDER PAIN [None]
  - UTERINE MASS [None]
